FAERS Safety Report 24056663 (Version 2)
Quarter: 2024Q3

REPORT INFORMATION
  Report Type: Spontaneous
  Country: JP (occurrence: JP)
  Receive Date: 20240705
  Receipt Date: 20240731
  Transmission Date: 20241017
  Serious: Yes (Other)
  Sender: ELI LILLY AND CO
  Company Number: JP-ELI_LILLY_AND_COMPANY-JP202401015182

PATIENT
  Age: 74 Year
  Sex: Male
  Weight: 57 kg

DRUGS (7)
  1. NECITUMUMAB [Suspect]
     Active Substance: NECITUMUMAB
     Indication: Squamous cell carcinoma of lung
     Dosage: 800 MG, UNKNOWN
     Route: 041
     Dates: start: 20230912, end: 20231219
  2. GEMCITABINE HYDROCHLORIDE [Suspect]
     Active Substance: GEMCITABINE HYDROCHLORIDE
     Indication: Squamous cell carcinoma of lung
     Dosage: 1250 MG/M2, UNKNOWN
     Route: 041
     Dates: start: 20230912, end: 20231219
  3. CISPLATIN [Suspect]
     Active Substance: CISPLATIN
     Indication: Squamous cell carcinoma of lung
     Dosage: 75 MG/M2, UNKNOWN
     Route: 041
     Dates: start: 20230912, end: 20231212
  4. MAGNESIUM SULFATE DIHYDRATE [Concomitant]
     Indication: Electrolyte substitution therapy
     Dosage: UNK
     Dates: start: 20230902, end: 20231212
  5. FOSAPREPITANT DIMEGLUMINE [Concomitant]
     Active Substance: FOSAPREPITANT\FOSAPREPITANT DIMEGLUMINE
     Indication: Nausea
     Dosage: UNK
     Dates: end: 20230912
  6. PALONOSETRON HYDROCHLORIDE [Concomitant]
     Active Substance: PALONOSETRON HYDROCHLORIDE
     Indication: Nausea
     Dosage: UNK
     Dates: start: 20230912, end: 20231212
  7. DEXAMETHASONE SODIUM PHOSPHATE [Concomitant]
     Active Substance: DEXAMETHASONE PHOSPHATE\DEXAMETHASONE SODIUM PHOSPHATE
     Indication: Nausea
     Dosage: UNK
     Dates: start: 20230912, end: 20231212

REACTIONS (3)
  - Venous thrombosis limb [Not Recovered/Not Resolved]
  - Malignant neoplasm progression [Unknown]
  - Skin disorder [Recovered/Resolved]

NARRATIVE: CASE EVENT DATE: 20231120
